FAERS Safety Report 11627785 (Version 5)
Quarter: 2016Q2

REPORT INFORMATION
  Report Type: Spontaneous
  Country: CA (occurrence: CA)
  Receive Date: 20151014
  Receipt Date: 20160623
  Transmission Date: 20160815
  Serious: Yes (Other)
  Sender: FDA-Public Use
  Company Number: CA-ROCHE-1645417

PATIENT
  Age: 65 Year
  Sex: Female

DRUGS (14)
  1. XOLAIR [Suspect]
     Active Substance: OMALIZUMAB
     Route: 058
     Dates: start: 20131030
  2. ZENHALE [Concomitant]
     Active Substance: FORMOTEROL FUMARATE\MOMETASONE FUROATE
     Indication: PRODUCT USED FOR UNKNOWN INDICATION
     Route: 065
  3. SPIRIVA [Concomitant]
     Active Substance: TIOTROPIUM BROMIDE MONOHYDRATE
     Indication: PRODUCT USED FOR UNKNOWN INDICATION
     Route: 065
  4. XOLAIR [Suspect]
     Active Substance: OMALIZUMAB
     Indication: ASTHMA
     Route: 058
     Dates: start: 20130124
  5. ALVESCO [Concomitant]
     Active Substance: CICLESONIDE
     Indication: PRODUCT USED FOR UNKNOWN INDICATION
     Route: 065
  6. XOLAIR [Suspect]
     Active Substance: OMALIZUMAB
     Route: 058
     Dates: start: 20150519
  7. XOLAIR [Suspect]
     Active Substance: OMALIZUMAB
     Route: 058
     Dates: start: 20130711
  8. XOLAIR [Suspect]
     Active Substance: OMALIZUMAB
     Route: 058
     Dates: start: 20140218
  9. XOLAIR [Suspect]
     Active Substance: OMALIZUMAB
     Route: 058
     Dates: start: 20150224
  10. SINGULAIR [Concomitant]
     Active Substance: MONTELUKAST SODIUM
     Indication: PRODUCT USED FOR UNKNOWN INDICATION
     Route: 065
  11. XOLAIR [Suspect]
     Active Substance: OMALIZUMAB
     Route: 058
     Dates: start: 20130516
  12. VENTOLIN [Concomitant]
     Active Substance: ALBUTEROL SULFATE
     Indication: PRODUCT USED FOR UNKNOWN INDICATION
     Route: 065
  13. XOLAIR [Suspect]
     Active Substance: OMALIZUMAB
     Route: 058
     Dates: start: 20131126
  14. XOLAIR [Suspect]
     Active Substance: OMALIZUMAB
     Route: 058
     Dates: start: 20140121

REACTIONS (51)
  - Back pain [Not Recovered/Not Resolved]
  - Increased tendency to bruise [Not Recovered/Not Resolved]
  - Myalgia [Unknown]
  - Visual impairment [Unknown]
  - Skin injury [Unknown]
  - Renal pain [Not Recovered/Not Resolved]
  - Incorrect route of drug administration [Unknown]
  - Cough [Unknown]
  - Diarrhoea [Unknown]
  - Spider vein [Unknown]
  - Rib fracture [Unknown]
  - Head injury [Unknown]
  - Wheezing [Unknown]
  - Somnolence [Unknown]
  - Oropharyngeal pain [Unknown]
  - Formication [Unknown]
  - Dizziness [Unknown]
  - Headache [Unknown]
  - Laryngitis [Unknown]
  - Peripheral vascular disorder [Unknown]
  - Incorrect drug administration rate [Unknown]
  - Facial bones fracture [Unknown]
  - Malaise [Unknown]
  - Haemoptysis [Unknown]
  - Pain in extremity [Unknown]
  - Influenza [Unknown]
  - Musculoskeletal pain [Unknown]
  - Fatigue [Unknown]
  - Haemorrhage [Unknown]
  - Impaired healing [Unknown]
  - Rash [Recovering/Resolving]
  - Faeces discoloured [Unknown]
  - Odynophagia [Unknown]
  - Injection site pruritus [Unknown]
  - Joint swelling [Unknown]
  - Lymphadenopathy [Unknown]
  - Loss of consciousness [Unknown]
  - Lacrimation increased [Unknown]
  - Anaphylactoid reaction [Unknown]
  - Epistaxis [Unknown]
  - Fall [Unknown]
  - Gingival disorder [Unknown]
  - Haematoma [Unknown]
  - Urticaria [Unknown]
  - Body temperature decreased [Not Recovered/Not Resolved]
  - Nasopharyngitis [Unknown]
  - Dry throat [Unknown]
  - Injection site reaction [Unknown]
  - Sinus congestion [Unknown]
  - Laceration [Not Recovered/Not Resolved]
  - Upper respiratory tract infection [Unknown]

NARRATIVE: CASE EVENT DATE: 20130223
